FAERS Safety Report 5377812-3 (Version None)
Quarter: 2007Q3

REPORT INFORMATION
  Report Type: 
  Country: None (occurrence: None)
  Receive Date: 20070703
  Receipt Date: 20070621
  Transmission Date: 20080115
  Serious: Yes (Hospitalization)
  Sender: FDA-Public Use
  Company Number: BR-PFIZER INC-2007052590

PATIENT
  Sex: Female
  Weight: 61 kg

DRUGS (2)
  1. DOSTINEX [Suspect]
     Indication: HYPERPROLACTINAEMIA
     Route: 048
  2. ALL OTHER NON-THERAPEUTIC PRODUCTS [Suspect]

REACTIONS (9)
  - CHEMOTHERAPY [None]
  - EYE DISORDER [None]
  - HEADACHE [None]
  - HYPERGLYCAEMIA [None]
  - HYPERTENSION [None]
  - MALAISE [None]
  - NAUSEA [None]
  - PROSTRATION [None]
  - WEIGHT DECREASED [None]
